FAERS Safety Report 5116329-8 (Version None)
Quarter: 2006Q3

REPORT INFORMATION
  Report Type: 
  Country: None (occurrence: None)
  Receive Date: 20060927
  Receipt Date: 20060918
  Transmission Date: 20061208
  Serious: Yes (Disabling)
  Sender: FDA-Public Use
  Company Number: DE-ABBOTT-06P-062-0344273-00

PATIENT
  Sex: Male

DRUGS (5)
  1. ERGENYL CHRONO TABLETS [Suspect]
     Indication: PROPHYLAXIS
     Route: 048
     Dates: start: 20050101
  2. ERGENYL CHRONO TABLETS [Suspect]
     Route: 048
     Dates: start: 20031101, end: 20050101
  3. ZOLPIDEM TARTRATE [Concomitant]
     Indication: SLEEP DISORDER
     Route: 048
     Dates: start: 20020101
  4. LITHIUM CARBONATE [Concomitant]
     Indication: PROPHYLAXIS
     Route: 048
     Dates: start: 20050613
  5. RISPERIDONE [Concomitant]
     Indication: PROPHYLAXIS
     Route: 048
     Dates: start: 20031101

REACTIONS (1)
  - LOOSE TOOTH [None]
